FAERS Safety Report 9695890 (Version 1)
Quarter: 2013Q4

REPORT INFORMATION
  Report Type: Spontaneous
  Country: FR (occurrence: JP)
  Receive Date: 20131119
  Receipt Date: 20131119
  Transmission Date: 20140711
  Serious: Yes (Death)
  Sender: FDA-Public Use
  Company Number: JP-FRI-1000051433

PATIENT
  Age: 50 Year
  Sex: Male

DRUGS (1)
  1. MILNACIPRAN [Suspect]
     Route: 048

REACTIONS (2)
  - Death [Fatal]
  - Hypersexuality [Fatal]
